FAERS Safety Report 4975538-9 (Version None)
Quarter: 2006Q2

REPORT INFORMATION
  Report Type: 
  Country: None (occurrence: None)
  Receive Date: 20060410
  Receipt Date: 20060404
  Transmission Date: 20061013
  Serious: Yes (Death)
  Sender: FDA-Public Use
  Company Number: 2006-140416-NL

PATIENT
  Age: 67 Year
  Sex: Female

DRUGS (3)
  1. MIRTAZAPINE [Suspect]
     Indication: MAJOR DEPRESSION
  2. MIRTAZAPINE [Suspect]
     Indication: SUICIDE ATTEMPT
  3. ACETAMINOPHEN [Concomitant]

REACTIONS (10)
  - ASPHYXIA [None]
  - DEPRESSED LEVEL OF CONSCIOUSNESS [None]
  - DEPRESSIVE SYMPTOM [None]
  - DROWNING [None]
  - DRUG TOXICITY [None]
  - HEPATIC NECROSIS [None]
  - MIDDLE INSOMNIA [None]
  - PETECHIAE [None]
  - PULMONARY OEDEMA [None]
  - SEDATION [None]
